FAERS Safety Report 5649275-1 (Version None)
Quarter: 2008Q1

REPORT INFORMATION
  Report Type: 
  Country: None (occurrence: None)
  Receive Date: 20080304
  Receipt Date: 20071202
  Transmission Date: 20080703
  Serious: No
  Sender: FDA-Public Use
  Company Number: US-BAYER-200810034NA

PATIENT
  Age: 59 Year
  Weight: 94 kg

DRUGS (2)
  1. ULTRAVIST (PHARMACY BULK) [Suspect]
     Indication: COMPUTERISED TOMOGRAM
     Dosage: TOTAL DAILY DOSE: 100 ML  UNIT DOSE: 100 ML
     Route: 042
     Dates: start: 20070919, end: 20070919
  2. VOLUMEN [Concomitant]
     Route: 048
     Dates: start: 20070919, end: 20070919

REACTIONS (2)
  - SNEEZING [None]
  - URTICARIA [None]
